FAERS Safety Report 8816527 (Version 1)
Quarter: 2012Q4

REPORT INFORMATION
  Report Type: Spontaneous
  Country: US (occurrence: None)
  Receive Date: 20120927
  Receipt Date: 20120927
  Transmission Date: 20130627
  Serious: Yes (Other)
  Sender: FDA-Public Use
  Company Number: US-BANPHARM-20120147

PATIENT
  Age: 72 Year
  Sex: Female
  Weight: 68.18 kg

DRUGS (2)
  1. ALEVE LIQUID GELS 220 MG [Suspect]
     Indication: PAIN
     Route: 048
     Dates: start: 20120904, end: 20120904
  2. ELMIRON [Concomitant]

REACTIONS (1)
  - Choking [None]
